FAERS Safety Report 7243822-4 (Version None)
Quarter: 2011Q1

REPORT INFORMATION
  Report Type: 
  Country: None (occurrence: None)
  Receive Date: 20110125
  Receipt Date: 20110119
  Transmission Date: 20110831
  Serious: Yes (Death, Other)
  Sender: FDA-Public Use
  Company Number: PHHY2011MA04023

PATIENT
  Age: 47 Year
  Sex: Female

DRUGS (5)
  1. PEGINTERFERON ALFA-2A [Suspect]
     Dosage: 180 UG, ONCE A WEEK
  2. METHYLPREDNISOLONE [Concomitant]
     Dosage: 10MG/KG/DAY
     Route: 042
  3. RIBAVARIN [Suspect]
     Indication: HEPATITIS C
     Dosage: 400 MG, BID
  4. PREDNISOLONE [Concomitant]
     Dosage: 60 MG, UNK
  5. PREDNISOLONE [Concomitant]
     Dosage: 1MG/KG/DAY
     Route: 042

REACTIONS (19)
  - CEREBRAL SARCOIDOSIS [None]
  - APHASIA [None]
  - ANGIOTENSIN CONVERTING ENZYME INCREASED [None]
  - BRAIN OEDEMA [None]
  - LUNG NEOPLASM [None]
  - SARCOIDOSIS [None]
  - NEUROLOGICAL DECOMPENSATION [None]
  - DYSPNOEA [None]
  - ACUTE RESPIRATORY FAILURE [None]
  - LYMPHADENOPATHY MEDIASTINAL [None]
  - COMA [None]
  - PLEOCYTOSIS [None]
  - RASH [None]
  - LETHARGY [None]
  - SUBCUTANEOUS NODULE [None]
  - GRANULOMA [None]
  - VIITH NERVE PARALYSIS [None]
  - SENSATION OF HEAVINESS [None]
  - WEIGHT DECREASED [None]
